FAERS Safety Report 9212539 (Version 1)
Quarter: 2013Q2

REPORT INFORMATION
  Report Type: Spontaneous
  Country: US (occurrence: US)
  Receive Date: 20130405
  Receipt Date: 20130405
  Transmission Date: 20140414
  Serious: No
  Sender: FDA-Public Use
  Company Number: US-009507513-1304USA000632

PATIENT
  Age: 41 Year
  Sex: Female

DRUGS (3)
  1. JANUMET XR [Suspect]
     Indication: DIABETES MELLITUS
     Dosage: 100MG/1000MG TWICE A DAY
     Route: 048
     Dates: start: 201103
  2. LIPITOR [Concomitant]
  3. CRESTOR [Concomitant]

REACTIONS (6)
  - Irritability [Recovering/Resolving]
  - Headache [Recovering/Resolving]
  - Nausea [Recovering/Resolving]
  - Blood glucose increased [Unknown]
  - Drug dose omission [Unknown]
  - Overdose [Unknown]
